FAERS Safety Report 18706379 (Version 1)
Quarter: 2021Q1

REPORT INFORMATION
  Report Type: Spontaneous
  Country: CN (occurrence: CN)
  Receive Date: 20210106
  Receipt Date: 20210106
  Transmission Date: 20210419
  Serious: Yes (Other)
  Sender: FDA-Public Use
  Company Number: CN-ASTRAZENECA-2021A000760

PATIENT
  Age: 24107 Day
  Sex: Male

DRUGS (3)
  1. BRILINTA [Suspect]
     Active Substance: TICAGRELOR
     Indication: CORONARY ARTERY DISEASE
     Route: 048
     Dates: start: 20201209, end: 20201214
  2. BRILINTA [Suspect]
     Active Substance: TICAGRELOR
     Indication: ANGINA PECTORIS
     Route: 048
     Dates: start: 20201209, end: 20201214
  3. BRILINTA [Suspect]
     Active Substance: TICAGRELOR
     Indication: PLATELET AGGREGATION TEST
     Route: 048
     Dates: start: 20201209, end: 20201214

REACTIONS (2)
  - Cardiac failure [Unknown]
  - Tachypnoea [Recovering/Resolving]

NARRATIVE: CASE EVENT DATE: 20201213
